FAERS Safety Report 5165805-0 (Version None)
Quarter: 2006Q4

REPORT INFORMATION
  Report Type: 
  Country: None (occurrence: None)
  Receive Date: 20061128
  Receipt Date: 20061114
  Transmission Date: 20070319
  Serious: Yes (Hospitalization, Other)
  Sender: FDA-Public Use
  Company Number: 2006-02975

PATIENT
  Age: 71 Year
  Sex: Male
  Weight: 72.6 kg

DRUGS (13)
  1. VELCADE [Suspect]
     Indication: MULTIPLE MYELOMA
     Dates: start: 20040701
  2. VELCADE [Suspect]
     Indication: MULTIPLE MYELOMA
     Dates: start: 20050101
  3. ZOMETA [Concomitant]
  4. ACYCLOVIR [Concomitant]
  5. NORVASC [Concomitant]
  6. ALLEGRA-D    (PSEUDOEPHEDRINE HYDROCHLORIDE, FEXOFENADINE) [Concomitant]
  7. DIFLUCAN [Concomitant]
  8. PANTOPRAZOLE SODIUM [Concomitant]
  9. TOPROL-XL [Concomitant]
  10. ACETYLSALICYLIC ACID SRT [Concomitant]
  11. VITAMINS [Concomitant]
  12. CALCIUM [Concomitant]
  13. OMEGA 3                (FISH OIL) [Concomitant]

REACTIONS (9)
  - ATRIAL FIBRILLATION [None]
  - DIARRHOEA [None]
  - DISTURBANCE IN ATTENTION [None]
  - HYPOAESTHESIA [None]
  - HYPOGEUSIA [None]
  - HYPOSMIA [None]
  - NEUROPATHY [None]
  - SOMNOLENCE [None]
  - VENTRICULAR TACHYCARDIA [None]
